FAERS Safety Report 4972114-9 (Version None)
Quarter: 2006Q2

REPORT INFORMATION
  Report Type: 
  Country: None (occurrence: None)
  Receive Date: 20060413
  Receipt Date: 20051208
  Transmission Date: 20061013
  Serious: Yes (Other)
  Sender: FDA-Public Use
  Company Number: JP-SANOFI-SYNTHELABO-F01200502696

PATIENT
  Sex: Female
  Weight: 44 kg

DRUGS (3)
  1. OXALIPLATIN [Suspect]
     Indication: COLON CANCER
     Route: 042
     Dates: start: 20050824, end: 20050824
  2. FLUOROURACIL [Suspect]
     Dosage: 500 MG/BODY=370.4 MG/M2 IN BOLUS THEN 750 MG/BODY=555.6 MG/M2 AS CONTINUOUS INFUSION, D1+2
     Route: 042
     Dates: start: 20050824, end: 20050825
  3. CALCIUM LEVOFOLINATE [Suspect]
     Route: 042
     Dates: start: 20050824, end: 20050825

REACTIONS (1)
  - HEPATIC STEATOSIS [None]
